FAERS Safety Report 4472890-8 (Version None)
Quarter: 2004Q4

REPORT INFORMATION
  Report Type: 
  Country: None (occurrence: None)
  Receive Date: 20041012
  Receipt Date: 20041012
  Transmission Date: 20050328
  Serious: Yes (Hospitalization, Other)
  Sender: FDA-Public Use
  Company Number: None

PATIENT
  Age: 74 Year
  Sex: Male

DRUGS (4)
  1. WARFARIN SODIUM [Suspect]
  2. VALDECOXIB [Suspect]
  3. ASPIRIN [Suspect]
  4. FERROUS SULFATE TAB [Suspect]

REACTIONS (1)
  - GASTROINTESTINAL HAEMORRHAGE [None]
